FAERS Safety Report 24983220 (Version 2)
Quarter: 2025Q1

REPORT INFORMATION
  Report Type: Report from Study
  Country: US (occurrence: US)
  Receive Date: 20250218
  Receipt Date: 20250317
  Transmission Date: 20250409
  Serious: No
  Sender: SUNOVION
  Company Number: US-SUMITOMO PHARMA SWITZERLAND GMBH-2025SPA001343

PATIENT

DRUGS (16)
  1. ORGOVYX [Suspect]
     Active Substance: RELUGOLIX
     Indication: Prostate cancer
     Dosage: 360 MG, SINGLE
     Route: 048
  2. ORGOVYX [Suspect]
     Active Substance: RELUGOLIX
     Dosage: 120 MG, QD
     Route: 048
     Dates: start: 20250130
  3. ERLEADA [Suspect]
     Active Substance: APALUTAMIDE
     Route: 065
  4. ASPIRIN [Concomitant]
     Active Substance: ASPIRIN
     Route: 065
  5. CALCIUM\VITAMIN D [Concomitant]
     Active Substance: CALCIUM\VITAMIN D
     Route: 065
  6. DIETARY SUPPLEMENT [Concomitant]
     Active Substance: DIETARY SUPPLEMENT
     Route: 065
  7. CHLORTHALIDONE [Concomitant]
     Active Substance: CHLORTHALIDONE
     Route: 065
  8. FISH OIL [Concomitant]
     Active Substance: FISH OIL
     Route: 065
  9. FIRMAGON [Concomitant]
     Active Substance: DEGARELIX ACETATE
     Route: 065
  10. HYDROXYZINE [Concomitant]
     Active Substance: HYDROXYZINE HYDROCHLORIDE
     Route: 065
  11. LIPITOR [Concomitant]
     Active Substance: ATORVASTATIN CALCIUM
     Route: 065
  12. MAGNESIUM [Concomitant]
     Active Substance: MAGNESIUM
     Route: 065
  13. MOMETASONE FUROATE [Concomitant]
     Active Substance: MOMETASONE FUROATE
     Route: 065
  14. VITAMINS [Concomitant]
     Active Substance: VITAMINS
     Route: 065
  15. TAMSULOSIN [Concomitant]
     Active Substance: TAMSULOSIN
     Route: 065
  16. VITAMIN C [Concomitant]
     Active Substance: ASCORBIC ACID
     Route: 065

REACTIONS (1)
  - Hot flush [Unknown]
